FAERS Safety Report 9543643 (Version 1)
Quarter: 2013Q3

REPORT INFORMATION
  Report Type: Report from Study
  Country: US (occurrence: US)
  Receive Date: 20130923
  Receipt Date: 20130923
  Transmission Date: 20140515
  Serious: Yes (Hospitalization, Other)
  Sender: FDA-Public Use
  Company Number: US-TEVA-433564USA

PATIENT
  Age: 61 Year
  Sex: Male

DRUGS (1)
  1. CLOZAPINE [Suspect]
     Indication: SCHIZOPHRENIA, PARANOID TYPE
     Route: 048

REACTIONS (5)
  - Cerebrovascular accident [Unknown]
  - Cardiac failure congestive [Unknown]
  - Somnolence [Unknown]
  - Dysarthria [Unknown]
  - Movement disorder [Unknown]
